FAERS Safety Report 8003748-5 (Version None)
Quarter: 2011Q4

REPORT INFORMATION
  Report Type: 
  Country: None (occurrence: None)
  Receive Date: 20111222
  Receipt Date: 20111213
  Transmission Date: 20120403
  Serious: Yes (Other)
  Sender: FDA-Public Use
  Company Number: FR-ASTRAZENECA-2011SE75973

PATIENT
  Age: 29376 Day
  Sex: Female

DRUGS (7)
  1. OMEPRAZOLE [Suspect]
     Route: 048
  2. METHOTREXATE [Suspect]
     Dosage: 10 TO 15 MG PER WEEK FOR AROUND 10 YEARS
     Route: 048
     Dates: end: 20110915
  3. IRBESARTAN AND HYDROCHLOROTHIAZIDE [Suspect]
     Route: 048
     Dates: end: 20110915
  4. LORAZEPAM [Suspect]
     Route: 048
  5. ACETAMINOPHEN [Suspect]
     Route: 048
  6. GLUCOVANCE [Suspect]
     Route: 048
     Dates: end: 20110915
  7. ARTHROTEC [Suspect]
     Route: 048
     Dates: end: 20110915

REACTIONS (1)
  - HEPATIC CIRRHOSIS [None]
